FAERS Safety Report 6383216-7 (Version None)
Quarter: 2009Q3

REPORT INFORMATION
  Report Type: 
  Country: None (occurrence: None)
  Receive Date: 20090929
  Receipt Date: 20090914
  Transmission Date: 20100115
  Serious: Yes (Death, Hospitalization)
  Sender: FDA-Public Use
  Company Number: 2008AL012435

PATIENT
  Age: 59 Year
  Sex: Male

DRUGS (13)
  1. DIGOXIN [Suspect]
     Indication: ATRIAL FIBRILLATION
     Dosage: 0.125 MG. DAILY PO
     Route: 048
     Dates: start: 20061106
  2. LIPITOR [Concomitant]
  3. PAXIL [Concomitant]
  4. ISORDIL [Concomitant]
  5. CLONIDINE [Concomitant]
  6. HYDRALAZINE [Concomitant]
  7. COUMADIN [Concomitant]
  8. AMIODARONE [Concomitant]
  9. ATENOLOL [Concomitant]
  10. FUROSEMIDE [Concomitant]
  11. LISINOPRIL [Concomitant]
  12. HEPARIN [Concomitant]
  13. ZOSYN [Concomitant]

REACTIONS (8)
  - ANXIETY [None]
  - CORONARY ARTERY DISEASE [None]
  - CORONARY ARTERY OCCLUSION [None]
  - FOOT AMPUTATION [None]
  - INJURY [None]
  - OSTEOMYELITIS [None]
  - PAIN [None]
  - PULMONARY EMBOLISM [None]
